FAERS Safety Report 20822270 (Version 2)
Quarter: 2023Q1

REPORT INFORMATION
  Report Type: Spontaneous
  Country: US (occurrence: US)
  Receive Date: 20220512
  Receipt Date: 20230104
  Transmission Date: 20230417
  Serious: No
  Sender: FDA-Public Use
  Company Number: US-PFIZER INC-202200200158

PATIENT
  Age: 63 Year
  Sex: Female

DRUGS (2)
  1. AMOXICILLIN [Suspect]
     Active Substance: AMOXICILLIN
     Dosage: UNK
  2. ESTROGENS, CONJUGATED [Suspect]
     Active Substance: ESTROGENS, CONJUGATED
     Dosage: UNK

REACTIONS (2)
  - Urticaria [Unknown]
  - Drug hypersensitivity [Unknown]
